FAERS Safety Report 9419978 (Version 1)
Quarter: 2013Q3

REPORT INFORMATION
  Report Type: Spontaneous
  Country: US (occurrence: None)
  Receive Date: 20130724
  Receipt Date: 20130724
  Transmission Date: 20140515
  Serious: No
  Sender: FDA-Public Use
  Company Number: None

PATIENT
  Age: 65 Year
  Sex: Male
  Weight: 77.1 kg

DRUGS (1)
  1. WELLBUTRIN XL [Suspect]
     Dosage: 150 MG DAILY PO
     Route: 048
     Dates: start: 20130701, end: 20130702

REACTIONS (1)
  - Psychotic disorder [None]
